FAERS Safety Report 6887023-8 (Version None)
Quarter: 2010Q3

REPORT INFORMATION
  Report Type: 
  Country: None (occurrence: None)
  Receive Date: 20100708
  Receipt Date: 20100303
  Transmission Date: 20110219
  Serious: Yes (Other)
  Sender: FDA-Public Use
  Company Number: 2010028619

PATIENT
  Age: 21 Year
  Sex: Male
  Weight: 59 kg

DRUGS (2)
  1. CHANTIX [Suspect]
     Indication: SMOKING CESSATION THERAPY
     Dosage: 0.5 MG, 1X/DAY : 0.5 MG, 2X/DAY
     Dates: start: 20100101
  2. CHANTIX [Suspect]
     Indication: SMOKING CESSATION THERAPY
     Dosage: 0.5 MG, 1X/DAY : 0.5 MG, 2X/DAY
     Dates: start: 20100226

REACTIONS (4)
  - CHEST PAIN [None]
  - DYSPNOEA [None]
  - HEADACHE [None]
  - NAUSEA [None]
